FAERS Safety Report 6901007-2 (Version None)
Quarter: 2010Q4

REPORT INFORMATION
  Report Type: 
  Country: None (occurrence: None)
  Receive Date: 20100803
  Receipt Date: 20100726
  Transmission Date: 20110411
  Serious: Yes (Disabling, Other)
  Sender: FDA-Public Use
  Company Number: US-SANOFI-AVENTIS-2010SA044971

PATIENT
  Sex: Male

DRUGS (9)
  1. CLOPIDOGREL BISULFATE [Suspect]
     Route: 048
  2. CADUET [Suspect]
     Route: 065
  3. HYDROCHLOROTHIAZIDE [Suspect]
     Route: 065
  4. ATENOLOL [Concomitant]
  5. AMLODIPINE [Concomitant]
  6. PROSCAR [Concomitant]
  7. XALATAN [Concomitant]
  8. ZETIA [Concomitant]
  9. ASPIRIN [Concomitant]

REACTIONS (4)
  - BLOOD POTASSIUM DECREASED [None]
  - FALL [None]
  - GAIT DISTURBANCE [None]
  - MUSCULAR WEAKNESS [None]
